FAERS Safety Report 19224749 (Version 1)
Quarter: 2021Q2

REPORT INFORMATION
  Report Type: Spontaneous
  Country: DK (occurrence: DK)
  Receive Date: 20210506
  Receipt Date: 20210506
  Transmission Date: 20210717
  Serious: Yes (Other)
  Sender: FDA-Public Use
  Company Number: DK-VERTEX PHARMACEUTICALS-2021-007061

PATIENT
  Age: 25 Year
  Sex: Female

DRUGS (1)
  1. KAFTRIO [Suspect]
     Active Substance: ELEXACAFTOR\IVACAFTOR\TEZACAFTOR
     Indication: CYSTIC FIBROSIS
     Dosage: UNK
     Route: 048

REACTIONS (5)
  - Psychotic disorder [Unknown]
  - Syncope [Unknown]
  - Amnesia [Not Recovered/Not Resolved]
  - Epilepsy [Not Recovered/Not Resolved]
  - Feeling abnormal [Not Recovered/Not Resolved]

NARRATIVE: CASE EVENT DATE: 202104
